FAERS Safety Report 21763043 (Version 1)
Quarter: 2022Q4

REPORT INFORMATION
  Report Type: Spontaneous
  Country: GB (occurrence: GB)
  Receive Date: 20221221
  Receipt Date: 20221221
  Transmission Date: 20230113
  Serious: Yes (Life-Threatening, Hospitalization, Disabling, Other)
  Sender: FDA-Public Use
  Company Number: GB-MHRA-MED-202212181559310570-ZQNRB

PATIENT
  Age: 34 Year
  Weight: 95 kg

DRUGS (10)
  1. LORAZEPAM [Suspect]
     Active Substance: LORAZEPAM
     Dosage: 10 MG (SOMETIMES TAKES 10MG LORAZEPAM )
  2. LORAZEPAM [Suspect]
     Active Substance: LORAZEPAM
     Dosage: 6 MG
  3. LORAZEPAM [Suspect]
     Active Substance: LORAZEPAM
     Dosage: 6 MG
  4. MODAFINIL [Suspect]
     Active Substance: MODAFINIL
     Dosage: 100 MG
  5. PROMETHAZINE HYDROCHLORIDE [Suspect]
     Active Substance: PROMETHAZINE HYDROCHLORIDE
     Dosage: 200 MG (USUALLY TAKES UP TO 200MG PROMETHAZINE HCL)
  6. PROMETHAZINE HYDROCHLORIDE [Suspect]
     Active Substance: PROMETHAZINE HYDROCHLORIDE
     Dosage: 100 MG
  7. PROMETHAZINE HYDROCHLORIDE [Suspect]
     Active Substance: PROMETHAZINE HYDROCHLORIDE
     Dosage: 100 MG
  8. TRAMADOL [Suspect]
     Active Substance: TRAMADOL
     Dosage: 400 MG (400MG TRAMADOL SLOW RELEASE)
  9. TRAMADOL [Suspect]
     Active Substance: TRAMADOL
     Dosage: 400 MG (400MG TRAMADOL SLOW RELEASE)
  10. COCODAMOL [Concomitant]
     Active Substance: ACETAMINOPHEN\CODEINE PHOSPHATE
     Dosage: 16MG/4HOURS

REACTIONS (2)
  - Amnesia [Recovered/Resolved]
  - Loss of consciousness [Unknown]

NARRATIVE: CASE EVENT DATE: 20221215
